FAERS Safety Report 9506384 (Version 1)
Quarter: 2013Q1

REPORT INFORMATION
  Report Type: Spontaneous
  Country: US (occurrence: None)
  Receive Date: 20130301
  Receipt Date: 20130301
  Transmission Date: 20140127
  Serious: Yes (Hospitalization, Other)
  Sender: FDA-Public Use
  Company Number: RB-43866-2012

PATIENT
  Sex: Female

DRUGS (3)
  1. SUBUTEX [Suspect]
     Indication: DRUG DEPENDENCE
     Route: 064
     Dates: start: 2006, end: 2006
  2. HEROIN [Suspect]
     Indication: DRUG DEPENDENCE
     Route: 064
     Dates: end: 2006
  3. COCAINE [Suspect]
     Indication: DRUG DEPENDENCE
     Route: 064
     Dates: start: 2006, end: 200610

REACTIONS (3)
  - Foetal exposure during pregnancy [None]
  - Drug withdrawal syndrome neonatal [None]
  - Gastrooesophageal reflux disease [None]
